FAERS Safety Report 9783221 (Version 1)
Quarter: 2013Q4

REPORT INFORMATION
  Report Type: Spontaneous
  Country: CH (occurrence: CH)
  Receive Date: 20131226
  Receipt Date: 20131226
  Transmission Date: 20140711
  Serious: Yes (Hospitalization)
  Sender: FDA-Public Use
  Company Number: PHHY2013CH150018

PATIENT
  Age: 85 Year
  Sex: Female

DRUGS (8)
  1. DIGOXIN [Suspect]
     Indication: ARRHYTHMIA
     Dosage: 0.125 MG, EVERY WEEK 03 SINGLE DOSES
     Route: 048
     Dates: start: 1996
  2. TOREM [Suspect]
     Indication: ESSENTIAL HYPERTENSION
     Dosage: 2.5 MG, QD
     Route: 048
     Dates: start: 2010, end: 20111013
  3. BELOC [Suspect]
     Indication: ESSENTIAL HYPERTENSION
     Dosage: 25 MG, QD
     Route: 048
     Dates: start: 201104
  4. SINTROM [Concomitant]
     Indication: ESSENTIAL HYPERTENSION
     Dosage: 1 DF, PER DAY
     Route: 048
     Dates: start: 1996
  5. SINTROM [Concomitant]
     Indication: INTERNATIONAL NORMALISED RATIO ABNORMAL
  6. DAFALGAN [Concomitant]
     Indication: PAIN
     Dosage: 1 G, TID
     Route: 048
     Dates: start: 20110930
  7. TRUSOPT [Concomitant]
     Indication: GLAUCOMA
     Dosage: 1 GTT, TID
     Route: 047
  8. XALATAN [Concomitant]
     Indication: GLAUCOMA
     Dosage: 1 GTT, PER DAY
     Route: 047

REACTIONS (1)
  - Fall [Recovering/Resolving]
